FAERS Safety Report 17415891 (Version 2)
Quarter: 2020Q1

REPORT INFORMATION
  Report Type: Spontaneous
  Country: JP (occurrence: JP)
  Receive Date: 20200213
  Receipt Date: 20200227
  Transmission Date: 20200409
  Serious: Yes (Life-Threatening, Hospitalization, Other)
  Sender: FDA-Public Use
  Company Number: JP-PFIZER INC-2019469919

PATIENT
  Age: 63 Year
  Sex: Male
  Weight: 75 kg

DRUGS (2)
  1. SUTENT [Suspect]
     Active Substance: SUNITINIB MALATE
     Indication: RENAL CELL CARCINOMA
     Dosage: 50 MG, DAILY
     Route: 048
     Dates: start: 201904
  2. SUTENT [Suspect]
     Active Substance: SUNITINIB MALATE
     Dosage: 50 MG, ALTERNATE DAY
     Dates: start: 20190709

REACTIONS (12)
  - Platelet count decreased [Recovering/Resolving]
  - Blood urea increased [Recovering/Resolving]
  - Protein total decreased [Recovering/Resolving]
  - Blood glucose increased [Unknown]
  - Haemoglobin decreased [Recovering/Resolving]
  - Arteriosclerosis [Not Recovered/Not Resolved]
  - C-reactive protein increased [Recovering/Resolving]
  - Aspartate aminotransferase increased [Recovering/Resolving]
  - Haematocrit decreased [Recovering/Resolving]
  - Acute myocardial infarction [Recovering/Resolving]
  - Blood chloride increased [Recovering/Resolving]
  - Red blood cell count decreased [Recovering/Resolving]

NARRATIVE: CASE EVENT DATE: 20190709
